FAERS Safety Report 16911518 (Version 1)
Quarter: 2019Q4

REPORT INFORMATION
  Report Type: Spontaneous
  Country: US (occurrence: US)
  Receive Date: 20191013
  Receipt Date: 20191013
  Transmission Date: 20200122
  Serious: No
  Sender: FDA-Public Use
  Company Number: US-C B FLEET CO INC-201811-US-002737

PATIENT
  Sex: Female

DRUGS (1)
  1. MONISTAT 7 7-DAY DISPOSABLE APPLICATORS [Suspect]
     Active Substance: MICONAZOLE NITRATE
     Indication: FUNGAL INFECTION
     Dosage: USED ONCE- 2%
     Route: 067

REACTIONS (4)
  - Vulvovaginal burning sensation [Recovered/Resolved]
  - Vulvovaginal swelling [Not Recovered/Not Resolved]
  - Tenderness [Recovered/Resolved]
  - Skin exfoliation [Not Recovered/Not Resolved]
